FAERS Safety Report 5801196-7 (Version None)
Quarter: 2008Q3

REPORT INFORMATION
  Report Type: 
  Country: None (occurrence: None)
  Receive Date: 20080707
  Receipt Date: 20080624
  Transmission Date: 20090109
  Serious: Yes (Other)
  Sender: FDA-Public Use
  Company Number: US-JNJFOC-20080606239

PATIENT
  Sex: Female
  Weight: 58.97 kg

DRUGS (17)
  1. FENTANYL TRANSDERMAL SYSTEM [Suspect]
     Indication: PAIN
     Route: 062
  2. PROCARDIA [Concomitant]
     Indication: CARDIAC DISORDER
     Route: 048
  3. VYTORIN [Concomitant]
     Indication: BLOOD CHOLESTEROL
     Dosage: 10/ 80 MG
     Route: 048
  4. NITROSTAT [Concomitant]
     Indication: HYPOAESTHESIA
     Route: 060
  5. PLAVIX [Concomitant]
     Indication: BLOOD CHOLESTEROL
     Route: 048
  6. CLONIDINE [Concomitant]
     Indication: CAPILLARY DISORDER
     Route: 048
  7. IMDISE [Concomitant]
     Indication: BLOOD PRESSURE
     Route: 048
  8. IMDISE [Concomitant]
     Indication: CARDIAC DISORDER
     Dosage: 3X 30MG
     Route: 048
  9. POTASSIUM CHLORIDE [Concomitant]
     Indication: ELECTROLYTE SUBSTITUTION THERAPY
     Route: 048
  10. TOPROL-XL [Concomitant]
     Indication: CARDIAC DISORDER
     Route: 048
  11. ALBUTEROL [Concomitant]
     Indication: DYSPNOEA
     Route: 055
  12. ADVAIR DISKUS 100/50 [Concomitant]
     Indication: DYSPNOEA
     Route: 055
  13. TIGAN [Concomitant]
     Indication: NAUSEA
     Route: 048
  14. TIGAN [Concomitant]
     Indication: GASTRIC DISORDER
     Route: 048
  15. PERCOCET [Concomitant]
     Indication: PAIN
     Dosage: 10/ 325 MG
     Route: 048
  16. SOMA [Concomitant]
     Indication: MUSCLE RELAXANT THERAPY
     Route: 048
  17. VALIUM [Concomitant]
     Indication: SLEEP DISORDER
     Route: 048

REACTIONS (6)
  - BONE DISORDER [None]
  - HYPERHIDROSIS [None]
  - INSOMNIA [None]
  - LETHARGY [None]
  - THYROID DISORDER [None]
  - WEIGHT INCREASED [None]
